FAERS Safety Report 24869907 (Version 4)
Quarter: 2025Q3

REPORT INFORMATION
  Report Type: Report from Study
  Country: US (occurrence: US)
  Receive Date: 20250121
  Receipt Date: 20250804
  Transmission Date: 20251020
  Serious: No
  Sender: LUNDBECK
  Company Number: US-LUNDBECK-DKLU4007344

PATIENT
  Age: 23 Year
  Sex: Female
  Weight: 54.431 kg

DRUGS (2)
  1. VYEPTI [Suspect]
     Active Substance: EPTINEZUMAB-JJMR
     Indication: Migraine
     Route: 041
     Dates: start: 20231122, end: 20240803
  2. STELARA [Concomitant]
     Active Substance: USTEKINUMAB
     Indication: Colitis ulcerative

REACTIONS (1)
  - Maternal exposure during pregnancy [Unknown]

NARRATIVE: CASE EVENT DATE: 20240717
